FAERS Safety Report 20752838 (Version 2)
Quarter: 2023Q2

REPORT INFORMATION
  Report Type: Spontaneous
  Country: US (occurrence: None)
  Receive Date: 20220426
  Receipt Date: 20230420
  Transmission Date: 20230722
  Serious: No
  Sender: FDA-Public Use
  Company Number: US-ROCHE-2918577

PATIENT
  Sex: Male

DRUGS (3)
  1. ESBRIET [Suspect]
     Active Substance: PIRFENIDONE
     Indication: Idiopathic pulmonary fibrosis
     Dosage: 1 DF = 1 TABLET 267 MG
     Route: 048
     Dates: start: 20210907
  2. ESBRIET [Suspect]
     Active Substance: PIRFENIDONE
     Dosage: 1 DF = 1 TABLET 267 MG
     Route: 048
  3. ESBRIET [Suspect]
     Active Substance: PIRFENIDONE
     Dosage: 1 DF = 1 TABLET 267 MG
     Route: 048

REACTIONS (1)
  - Fatigue [Not Recovered/Not Resolved]
